FAERS Safety Report 4407318-7 (Version None)
Quarter: 2004Q3

REPORT INFORMATION
  Report Type: 
  Country: None (occurrence: None)
  Receive Date: 20040721
  Receipt Date: 20040713
  Transmission Date: 20050211
  Serious: Yes (Hospitalization)
  Sender: FDA-Public Use
  Company Number: 200418705BWH

PATIENT
  Age: 49 Year
  Sex: Female
  Weight: 175 kg

DRUGS (10)
  1. CIPRO [Suspect]
     Indication: FURUNCLE
     Dosage: 1000 MG, TOTAL DAILY, ORAL
     Route: 048
     Dates: start: 20021220, end: 20030118
  2. CIPRO [Suspect]
     Indication: GENITAL DISORDER FEMALE
     Dosage: 1000 MG, TOTAL DAILY, ORAL
     Route: 048
     Dates: start: 20021220, end: 20030118
  3. CIPRO [Suspect]
     Indication: RESPIRATORY TRACT INFECTION
     Dosage: 1000 MG, TOTAL DAILY, ORAL
     Route: 048
     Dates: start: 20021220, end: 20030118
  4. ESKALITH [Suspect]
     Indication: SCHIZOPHRENIA, PARANOID TYPE
     Dosage: 450 MG, BID, ORAL
     Route: 048
     Dates: start: 19840101
  5. ADVAIR DISKUS 100/50 [Suspect]
     Dosage: 250/50 UG, BID, RESPIRATORY (INHALATION)
     Route: 055
     Dates: start: 20030101, end: 20030118
  6. ZYRTEC [Suspect]
     Indication: INFLUENZA
     Dosage: 10 MG
     Dates: start: 20030101, end: 20030118
  7. NAVANE [Concomitant]
  8. BENZTROPINE MESYLATE [Concomitant]
  9. RISPERIDONE [Concomitant]
  10. LOTENSIN [Concomitant]

REACTIONS (7)
  - DISEASE RECURRENCE [None]
  - DROOLING [None]
  - MOVEMENT DISORDER [None]
  - SKIN INFECTION [None]
  - SOMNOLENCE [None]
  - THERAPEUTIC AGENT TOXICITY [None]
  - TREMOR [None]
